FAERS Safety Report 6825013-1 (Version None)
Quarter: 2010Q3

REPORT INFORMATION
  Report Type: 
  Country: None (occurrence: None)
  Receive Date: 20100708
  Receipt Date: 20061129
  Transmission Date: 20110219
  Serious: No
  Sender: FDA-Public Use
  Company Number: US-PFIZER INC-2006151077

PATIENT
  Sex: Female
  Weight: 99.79 kg

DRUGS (2)
  1. CHANTIX [Suspect]
     Indication: SMOKING CESSATION THERAPY
     Route: 048
     Dates: start: 20060101
  2. CONTRACEPTIVE, UNSPECIFIED [Concomitant]

REACTIONS (3)
  - DIZZINESS [None]
  - DYSSTASIA [None]
  - NAUSEA [None]
